FAERS Safety Report 19021143 (Version 1)
Quarter: 2021Q1

REPORT INFORMATION
  Report Type: Spontaneous
  Country: US (occurrence: US)
  Receive Date: 20210317
  Receipt Date: 20210317
  Transmission Date: 20210420
  Serious: Yes (Other)
  Sender: FDA-Public Use
  Company Number: US-ALLERGAN-2110817US

PATIENT
  Sex: Male

DRUGS (4)
  1. METFORMIN [Concomitant]
     Active Substance: METFORMIN HYDROCHLORIDE
     Indication: DIABETES MELLITUS
  2. JANUVIA [Concomitant]
     Active Substance: SITAGLIPTIN PHOSPHATE
     Indication: DIABETES MELLITUS
  3. ALBUTEROL. [Concomitant]
     Active Substance: ALBUTEROL
     Indication: ASTHMA
     Dosage: UNK, PRN
     Route: 055
  4. ALPHAGAN P [Suspect]
     Active Substance: BRIMONIDINE TARTRATE
     Indication: GLAUCOMA
     Dosage: 3 DROPS A DAY TO EACH EYE OR SOMETIMES USES 2 DROPS DAILY
     Route: 047
     Dates: end: 20210306

REACTIONS (7)
  - Dyschromatopsia [Not Recovered/Not Resolved]
  - Product quality issue [Unknown]
  - Vision blurred [Recovering/Resolving]
  - Blindness transient [Not Recovered/Not Resolved]
  - Eye swelling [Recovered/Resolved]
  - Suspected product tampering [Unknown]
  - Visual brightness [Not Recovered/Not Resolved]

NARRATIVE: CASE EVENT DATE: 2021
